FAERS Safety Report 9256976 (Version 1)
Quarter: 2013Q2

REPORT INFORMATION
  Report Type: Spontaneous
  Country: GB (occurrence: None)
  Receive Date: 20130423
  Receipt Date: 20130423
  Transmission Date: 20140414
  Serious: Yes (Hospitalization, Other)
  Sender: FDA-Public Use
  Company Number: GER/UKI/13/0029119

PATIENT
  Age: 70 Year
  Sex: Male

DRUGS (10)
  1. OLANZAPINE (OLANZAPINE) [Suspect]
     Indication: HYPOMANIA
     Route: 048
     Dates: start: 20120810, end: 20121101
  2. ABILIFY (ARIPIPRAZOLE) [Suspect]
     Indication: BIPOLAR DISORDER
     Route: 048
     Dates: start: 201004
  3. MIRTAZAPINE (MIRTAZAPINE) [Suspect]
     Indication: BIPOLAR DISORDER
     Dates: start: 20121231
  4. ATORVASTATIN (ATORVASTATIN) [Concomitant]
  5. BISOPROLOL (BISOPROLOL) [Concomitant]
  6. FOLIC ACID (FOLIC ACID) [Concomitant]
  7. LANSOPRAZOLE (LANSOPRAZOLE) [Concomitant]
  8. LEVOTHYROXINE (LEVOTHYROXINE) [Concomitant]
  9. RAMIPRIL (RAMIPRIL) [Concomitant]
  10. WARFARIN (WARFARIN) [Concomitant]

REACTIONS (8)
  - Somnolence [None]
  - Fatigue [None]
  - Sedation [None]
  - Embolism venous [None]
  - Drug ineffective [None]
  - Depression [None]
  - Psychiatric symptom [None]
  - Decreased appetite [None]
